FAERS Safety Report 8979648 (Version 4)
Quarter: 2013Q1

REPORT INFORMATION
  Report Type: Report from Study
  Country: DE (occurrence: DE)
  Receive Date: 20121221
  Receipt Date: 20130315
  Transmission Date: 20140127
  Serious: Yes (Death, Life-Threatening)
  Sender: FDA-Public Use
  Company Number: DE-PFIZER INC-2012321785

PATIENT
  Age: 62 Year
  Sex: Female
  Weight: 68.1 kg

DRUGS (10)
  1. GEMTUZUMAB OZOGAMICIN [Suspect]
     Indication: ACUTE MYELOID LEUKAEMIA
     Dosage: 5.3 MG, 1X/DAY
     Dates: start: 20121122, end: 20121122
  2. IDARUBICIN HCL [Suspect]
     Indication: ACUTE MYELOID LEUKAEMIA
     Dosage: 21 MG, 1X/DAY
     Dates: start: 20121122, end: 20121124
  3. CYTARABINE [Suspect]
     Indication: ACUTE MYELOID LEUKAEMIA
     Dosage: 175 MG, 1X/DAY
     Dates: start: 20121122, end: 20121128
  4. ETOPOSIDE [Suspect]
     Indication: ACUTE MYELOID LEUKAEMIA
     Dosage: 175 MG, 1X/DAY
     Dates: start: 20121122, end: 20121124
  5. ATRA [Suspect]
     Indication: ACUTE MYELOID LEUKAEMIA
     Dosage: 70 MG, DAILY ON DAYS 6-8
     Dates: start: 20121127
  6. ATRA [Suspect]
     Dosage: 30 MG, DAILY ON DAYS 9-21
     Dates: end: 20121218
  7. ZIENAM [Concomitant]
     Indication: ANTIBIOTIC THERAPY
     Dosage: 3 G, 1X/DAY
     Route: 042
     Dates: start: 20121209
  8. FORTUM [Concomitant]
     Indication: ANTIBIOTIC THERAPY
     Dosage: 3 G, 1X/DAY
     Route: 042
     Dates: start: 20121207
  9. ACICLOVIR [Concomitant]
     Indication: ANTIBIOTIC THERAPY
     Dosage: 1800 MG, 1X/DAY
     Route: 042
     Dates: start: 20121207
  10. PARACETAMOL [Concomitant]
     Indication: PAIN
     Dosage: 1 G, 1X/DAY
     Route: 042
     Dates: start: 20121202

REACTIONS (1)
  - Neutropenic infection [Fatal]
